FAERS Safety Report 10150935 (Version 1)
Quarter: 2014Q2

REPORT INFORMATION
  Report Type: Spontaneous
  Country: US (occurrence: US)
  Receive Date: 20140502
  Receipt Date: 20140502
  Transmission Date: 20141212
  Serious: Yes (Hospitalization)
  Sender: FDA-Public Use
  Company Number: US-BAXTER-2014BAX020407

PATIENT
  Sex: Male

DRUGS (4)
  1. DIANEAL LOW CALCIUM [Suspect]
     Indication: PERITONEAL DIALYSIS
     Route: 033
     Dates: end: 20140130
  2. DIANEAL LOW CALCIUM [Suspect]
     Route: 033
     Dates: start: 20140310
  3. DIANEAL LOW CALCIUM [Suspect]
     Indication: PERITONEAL DIALYSIS
     Route: 033
     Dates: end: 20140130
  4. DIANEAL LOW CALCIUM [Suspect]
     Route: 033
     Dates: start: 20140310

REACTIONS (4)
  - Myocardial infarction [Recovered/Resolved]
  - Wound dehiscence [Recovered/Resolved]
  - Postoperative wound complication [Recovered/Resolved]
  - Oedema [Recovered/Resolved]
